FAERS Safety Report 12125826 (Version 1)
Quarter: 2016Q1

REPORT INFORMATION
  Report Type: Spontaneous
  Country: US (occurrence: US)
  Receive Date: 20160229
  Receipt Date: 20160229
  Transmission Date: 20160526
  Serious: Yes (Hospitalization)
  Sender: FDA-Public Use
  Company Number: US-ABBVIE-15P-163-1486582-00

PATIENT
  Sex: Male

DRUGS (1)
  1. ANDROGEL [Suspect]
     Active Substance: TESTOSTERONE
     Indication: BLOOD TESTOSTERONE DECREASED
     Route: 061

REACTIONS (7)
  - Anxiety [Unknown]
  - Emotional disorder [Unknown]
  - Economic problem [Unknown]
  - Injury [Unknown]
  - Myocardial infarction [Unknown]
  - Pain [Unknown]
  - Physical disability [Unknown]

NARRATIVE: CASE EVENT DATE: 20140122
